FAERS Safety Report 21530751 (Version 2)
Quarter: 2022Q4

REPORT INFORMATION
  Report Type: Spontaneous
  Country: None (occurrence: DE)
  Receive Date: 20221031
  Receipt Date: 20221108
  Transmission Date: 20230112
  Serious: Yes (Other)
  Sender: FDA-Public Use
  Company Number: DE-Ascend Therapeutics US, LLC-2134326

PATIENT
  Age: 48 Year
  Sex: Female
  Weight: 75 kg

DRUGS (4)
  1. ESTROGEL [Suspect]
     Active Substance: ESTRADIOL
     Indication: Hormone replacement therapy
     Route: 065
     Dates: start: 2022
  2. ESTROGEL [Suspect]
     Active Substance: ESTRADIOL
  3. ESTRADIOL [Suspect]
     Active Substance: ESTRADIOL
     Route: 065
     Dates: start: 2022
  4. PROGESTERONE [Suspect]
     Active Substance: PROGESTERONE
     Route: 065
     Dates: start: 2022

REACTIONS (6)
  - Arrhythmia [Unknown]
  - Initial insomnia [Unknown]
  - Heavy menstrual bleeding [Recovering/Resolving]
  - Hypomenorrhoea [Unknown]
  - Breast pain [Recovered/Resolved]
  - Product use in unapproved indication [None]

NARRATIVE: CASE EVENT DATE: 20220101
